FAERS Safety Report 4855151-4 (Version None)
Quarter: 2005Q4

REPORT INFORMATION
  Report Type: 
  Country: None (occurrence: None)
  Receive Date: 20051214
  Receipt Date: 20051130
  Transmission Date: 20060501
  Serious: Yes (Hospitalization)
  Sender: FDA-Public Use
  Company Number: FABR-11310

PATIENT
  Age: 37 Year
  Sex: Male
  Weight: 90 kg

DRUGS (4)
  1. FABRAZYME [Suspect]
     Indication: FABRY'S DISEASE
     Dosage: 90 MG Q2WKS IV
     Route: 042
     Dates: start: 20030729
  2. PROZAC [Concomitant]
  3. TOPAMAX [Concomitant]
  4. OXYCONTIN [Concomitant]

REACTIONS (5)
  - BACK PAIN [None]
  - CAUDA EQUINA SYNDROME [None]
  - CONDITION AGGRAVATED [None]
  - INTERVERTEBRAL DISC PROTRUSION [None]
  - SCIATICA [None]
